FAERS Safety Report 15772996 (Version 1)
Quarter: 2018Q4

REPORT INFORMATION
  Report Type: Spontaneous
  Country: IS (occurrence: IS)
  Receive Date: 20181228
  Receipt Date: 20181228
  Transmission Date: 20190205
  Serious: Yes (Life-Threatening, Hospitalization)
  Sender: FDA-Public Use
  Company Number: IS-TEVA-2018-IS-992357

PATIENT
  Age: 60 Year
  Sex: Male
  Weight: 90 kg

DRUGS (10)
  1. PHENERGAN 25 MG FILMUH??A?AR T?FLUR [Concomitant]
     Dosage: 100 MILLIGRAM DAILY; 100 MG IN THE EVENING
  2. PREGABALIN KRKA 150 MG H?R? HYLKI [Concomitant]
     Dosage: 150 MG X 2
  3. CYMBALTA [Concomitant]
     Active Substance: DULOXETINE HYDROCHLORIDE
     Dosage: 30 MILLIGRAM DAILY; 30 MG X 1
  4. FLUNITRAZEPAM MYLAN 1 MG T?FLUR [Concomitant]
     Dosage: 3 MILLIGRAM DAILY; 3 MG IN THE EVENING
  5. OMEPRAZOL ACTAVIS 20 MG MAGAS?RU?OLIN H?R? HYLKI [Concomitant]
     Active Substance: OMEPRAZOLE
     Dosage: 20 MILLIGRAM DAILY; 20 MG X 1
  6. MAGNESIA MEDIC 500 MG FILMUH??A?AR T?FLUR [Concomitant]
     Dosage: 1000 MG X 2
  7. CREON 10.000 S?RU?OLIN HYLKI, H?R? [Concomitant]
     Dosage: 1 X 2
  8. IMPUGAN 40 MG T?FLUR [Concomitant]
     Dosage: 40 MILLIGRAM DAILY; 40 MG X 1
  9. FENTANYL ACTAVIS 100 M?KR?G/KLST FOR?APL?STUR [Suspect]
     Active Substance: FENTANYL
     Indication: PANCREATITIS CHRONIC
     Dosage: 100 MCG 2X1 EVERY 3 DAYS
     Route: 065
     Dates: start: 20181015, end: 20181129
  10. CONTALGIN 60 MG FOR?AT?FLUR [Concomitant]
     Dosage: 60 MG + 120 MG

REACTIONS (3)
  - Loss of consciousness [Recovered/Resolved]
  - Respiratory failure [Recovered/Resolved]
  - Oxygen saturation decreased [Recovered/Resolved]

NARRATIVE: CASE EVENT DATE: 20181129
